FAERS Safety Report 16472488 (Version 3)
Quarter: 2019Q3

REPORT INFORMATION
  Report Type: Spontaneous
  Country: AU (occurrence: AU)
  Receive Date: 20190625
  Receipt Date: 20190815
  Transmission Date: 20191004
  Serious: Yes (Hospitalization, Other)
  Sender: FDA-Public Use
  Company Number: AU-BEH-2019103368

PATIENT
  Age: 90 Year
  Sex: Male
  Weight: 89.9 kg

DRUGS (10)
  1. MYCOPHENOLATE MOFETIL. [Concomitant]
     Active Substance: MYCOPHENOLATE MOFETIL
     Dosage: 250 MILLIGRAM
     Route: 065
     Dates: start: 20190614
  2. PRIVIGEN [Suspect]
     Active Substance: HUMAN IMMUNOGLOBULIN G
     Indication: MYASTHENIA GRAVIS
     Dosage: 20 GRAM
     Route: 042
     Dates: start: 20190614
  3. PREDNISOLONE. [Concomitant]
     Active Substance: PREDNISOLONE
     Dosage: 12.5 MILLIGRAM
     Route: 065
     Dates: start: 20190614
  4. METFORMIN [Concomitant]
     Active Substance: METFORMIN HYDROCHLORIDE
     Dosage: 500 MILLIGRAM
     Route: 065
     Dates: start: 20190614
  5. APIXABAN [Concomitant]
     Active Substance: APIXABAN
     Dosage: 2.5 MILLIGRAM
     Route: 065
     Dates: start: 20190614
  6. PERINDOPRIL [Concomitant]
     Active Substance: PERINDOPRIL
     Dosage: 5 MILLIGRAM
     Route: 065
     Dates: start: 20190614
  7. PRIVIGEN [Suspect]
     Active Substance: HUMAN IMMUNOGLOBULIN G
     Dosage: 20 GRAM
     Route: 042
     Dates: start: 20190614
  8. CALCIUM CARBONATE. [Concomitant]
     Active Substance: CALCIUM CARBONATE
     Dosage: 600 MILLIGRAM, QD
     Route: 065
     Dates: start: 20190614
  9. PANADOL [Concomitant]
     Active Substance: ACETAMINOPHEN
     Dosage: 1330 MILLIGRAM
     Route: 065
     Dates: start: 20190614
  10. PYRIDOSTIGMINE [Concomitant]
     Active Substance: PYRIDOSTIGMINE
     Dosage: 90 MILLIGRAM
     Route: 065
     Dates: start: 20190614

REACTIONS (7)
  - Hypersensitivity [Recovered/Resolved]
  - Malaise [Unknown]
  - Rash [Recovered/Resolved]
  - Balance disorder [Recovered/Resolved]
  - Lethargy [Recovered/Resolved]
  - Urticaria [Recovered/Resolved]
  - Pruritus [Recovered/Resolved]

NARRATIVE: CASE EVENT DATE: 20190614
